FAERS Safety Report 13550632 (Version 1)
Quarter: 2017Q2

REPORT INFORMATION
  Report Type: Spontaneous
  Country: US (occurrence: US)
  Receive Date: 20170516
  Receipt Date: 20170516
  Transmission Date: 20170830
  Serious: Yes (Life-Threatening, Hospitalization)
  Sender: FDA-Public Use
  Company Number: None

PATIENT
  Age: 65 Year
  Sex: Male
  Weight: 98.84 kg

DRUGS (2)
  1. LISINOPRIL. [Suspect]
     Active Substance: LISINOPRIL
     Indication: HYPERTENSION
     Route: 048
     Dates: start: 20161221, end: 20170101
  2. CEFAZOLIN [Suspect]
     Active Substance: CEFAZOLIN
     Indication: BACTERAEMIA
     Dates: start: 20170102, end: 20170103

REACTIONS (15)
  - Back pain [None]
  - Dysphagia [None]
  - Pharyngeal oedema [None]
  - Local swelling [None]
  - Chest pain [None]
  - Dyspnoea [None]
  - Respiratory depression [None]
  - Meningitis [None]
  - Angioedema [None]
  - Productive cough [None]
  - Sepsis [None]
  - Pneumonia bacterial [None]
  - Pulmonary congestion [None]
  - Lip swelling [None]
  - Mouth swelling [None]

NARRATIVE: CASE EVENT DATE: 20170104
